FAERS Safety Report 7798911-2 (Version None)
Quarter: 2011Q4

REPORT INFORMATION
  Report Type: 
  Country: None (occurrence: None)
  Receive Date: 20111006
  Receipt Date: 20110927
  Transmission Date: 20120403
  Serious: Yes (Other)
  Sender: FDA-Public Use
  Company Number: IR-JNJFOC-20111000155

PATIENT
  Age: 79 Year
  Sex: Male

DRUGS (3)
  1. TOPIRAMATE [Suspect]
     Indication: ESSENTIAL TREMOR
     Route: 065
  2. PROPRANOLOL [Suspect]
     Indication: ESSENTIAL TREMOR
     Route: 065
  3. ASPIRIN [Concomitant]
     Indication: ANGINA UNSTABLE
     Route: 065

REACTIONS (1)
  - CHOROIDAL DETACHMENT [None]
